FAERS Safety Report 5701516-8 (Version None)
Quarter: 2008Q2

REPORT INFORMATION
  Report Type: 
  Country: None (occurrence: None)
  Receive Date: 20080408
  Receipt Date: 20080327
  Transmission Date: 20081010
  Serious: Yes (Hospitalization)
  Sender: FDA-Public Use
  Company Number: 232971J08USA

PATIENT
  Age: 60 Year
  Sex: Female
  Weight: 71.6683 kg

DRUGS (13)
  1. REBIF [Suspect]
     Indication: MULTIPLE SCLEROSIS
     Dosage: 44 MCG, 3 IN 1 WEEKS, SUBCUTANEOUS; 44 MCG, 3 IN 1 WEEKS, SUBCUTANEOUS
     Route: 058
     Dates: start: 20040913, end: 20070721
  2. REBIF [Suspect]
     Indication: MULTIPLE SCLEROSIS
     Dosage: 44 MCG, 3 IN 1 WEEKS, SUBCUTANEOUS; 44 MCG, 3 IN 1 WEEKS, SUBCUTANEOUS
     Route: 058
     Dates: start: 20070731
  3. ACTONEL [Concomitant]
  4. XANAX [Concomitant]
  5. MIRTAZAPINE [Concomitant]
  6. NEURONTIN [Concomitant]
  7. BUTALBITAL/ACETAMINOPHEN (PHRENILIN) [Concomitant]
  8. PROVIGIL [Concomitant]
  9. FLOMAX [Concomitant]
  10. BACLOFEN [Concomitant]
  11. LYRICA [Concomitant]
  12. PERCOCET [Concomitant]
  13. OXYCONTIN [Concomitant]

REACTIONS (3)
  - FALL [None]
  - LIMB INJURY [None]
  - THROMBOSIS [None]
